FAERS Safety Report 8167447-1 (Version None)
Quarter: 2012Q1

REPORT INFORMATION
  Report Type: 
  Country: None (occurrence: None)
  Receive Date: 20120221
  Receipt Date: 20120210
  Transmission Date: 20120608
  Serious: Yes (Death, Life-Threatening, Hospitalization)
  Sender: FDA-Public Use
  Company Number: AUR-APL-2011-01229

PATIENT
  Age: 65 Year
  Sex: Male

DRUGS (9)
  1. CISPLATIN [Suspect]
     Indication: PRODUCT USED FOR UNKNOWN INDICATION
     Dosage: INTRAVENOUS
     Route: 042
     Dates: start: 20101221, end: 20110225
  2. DEXAMETHASONE [Suspect]
     Indication: PRODUCT USED FOR UNKNOWN INDICATION
     Dosage: (4 MG),ORAL
     Route: 048
     Dates: end: 20110225
  3. MORPHINE SULFATE [Suspect]
     Indication: PRODUCT USED FOR UNKNOWN INDICATION
     Dosage: (30 MG),ORAL
     Route: 048
  4. DALTEPARIN SODIUM [Suspect]
     Indication: LUNG NEOPLASM MALIGNANT
     Dates: start: 20101220, end: 20110225
  5. PIPERACILLIN AND TAZOBACTAM [Concomitant]
  6. ONDANSETRON [Suspect]
     Indication: PRODUCT USED FOR UNKNOWN INDICATION
     Dosage: (8 MG),ORAL
     Route: 048
  7. APREPITANT [Suspect]
     Indication: PRODUCT USED FOR UNKNOWN INDICATION
     Dosage: INTRAVENOUS
     Route: 042
     Dates: start: 20110225, end: 20110225
  8. PEMETREXED DISODIUM [Suspect]
     Indication: PRODUCT USED FOR UNKNOWN INDICATION
     Dosage: INTRAVENOUS
     Route: 042
     Dates: start: 20101221, end: 20110225
  9. ACETAMINOPHEN [Concomitant]

REACTIONS (4)
  - LARGE INTESTINE PERFORATION [None]
  - CONSTIPATION [None]
  - INFECTIOUS PERITONITIS [None]
  - LUNG CANCER METASTATIC [None]
